FAERS Safety Report 10812141 (Version 1)
Quarter: 2015Q1

REPORT INFORMATION
  Report Type: Spontaneous
  Country: US (occurrence: None)
  Receive Date: 20150212
  Receipt Date: 20150212
  Transmission Date: 20150721
  Serious: Yes (Other)
  Sender: FDA-Public Use
  Company Number: None

PATIENT
  Age: 53 Year
  Sex: Female
  Weight: 52.62 kg

DRUGS (11)
  1. CURCUMIN [Concomitant]
     Active Substance: CURCUMIN
  2. ASHWAGANDHA [Concomitant]
     Active Substance: HERBALS
  3. LATISSE [Suspect]
     Active Substance: BIMATOPROST
     Indication: GROWTH OF EYELASHES
     Dosage: 1 DROP PER LID APPLIED TO A SURFACE, USUALLY THE SKIN
     Dates: start: 20150115, end: 20150209
  4. FIORICET [Concomitant]
     Active Substance: ACETAMINOPHEN\BUTALBITAL\CAFFEINE
  5. SUDAFED [Concomitant]
     Active Substance: PSEUDOEPHEDRINE HYDROCHLORIDE
  6. THYROID [Concomitant]
     Active Substance: LEVOTHYROXINE\LIOTHYRONINE
  7. DELZICOL [Concomitant]
     Active Substance: MESALAMINE
  8. VITAMIN D [Concomitant]
     Active Substance: CHOLECALCIFEROL
  9. DULERA [Concomitant]
     Active Substance: FORMOTEROL FUMARATE DIHYDRATE\MOMETASONE FUROATE
  10. CALCIUM [Concomitant]
     Active Substance: CALCIUM
  11. XANAX [Concomitant]
     Active Substance: ALPRAZOLAM

REACTIONS (6)
  - Dysgeusia [None]
  - Reaction to drug excipients [None]
  - Eye pain [None]
  - Dyspnoea [None]
  - Oropharyngeal pain [None]
  - Eye irritation [None]

NARRATIVE: CASE EVENT DATE: 20150123
